FAERS Safety Report 9827985 (Version 2)
Quarter: 2014Q1

REPORT INFORMATION
  Report Type: Spontaneous
  Country: PT (occurrence: PT)
  Receive Date: 20140117
  Receipt Date: 20140129
  Transmission Date: 20141002
  Serious: Yes (Other)
  Sender: FDA-Public Use
  Company Number: PT-ACTAVIS-2014-00087

PATIENT
  Age: 73 Year
  Sex: Female
  Weight: 68 kg

DRUGS (4)
  1. GEMCITABINA ACTAVIS [Suspect]
     Indication: ANGIOIMMUNOBLASTIC T-CELL LYMPHOMA
     Dosage: 1800MG,3 TIMES CYCLICAL;SOL CONC:3.3 MG / ML, SPEED OF INFUSION: 1090ML / H, ADMINISTERED ONLY 1200M
     Route: 040
     Dates: start: 20131219, end: 20131219
  2. VISACOR                            /01588602/ [Concomitant]
     Indication: PRODUCT USED FOR UNKNOWN INDICATION
     Dosage: 10 MG FILM- COTED TABLET; ASTRAZENECA PRODUTOS FARMAC?UTICOS, LDA.
     Route: 048
  3. SERENAL                            /00040901/ [Concomitant]
     Indication: PRODUCT USED FOR UNKNOWN INDICATION
     Dosage: UNK; TABLET; MEDA PHARMA - PRODUTOS FARMAC?UTICOS, S.A.
     Route: 048
  4. FORTECORTIN                        /00016001/ [Concomitant]
     Indication: PREMEDICATION
     Dosage: 16 MG, CYCLICAL; TABLET; MERCK KGAA
     Route: 048
     Dates: start: 20131219

REACTIONS (3)
  - Erythema [Recovered/Resolved]
  - Paraesthesia oral [Recovered/Resolved]
  - Burning sensation [Recovered/Resolved]
